FAERS Safety Report 10068863 (Version 1)
Quarter: 2014Q2

REPORT INFORMATION
  Report Type: Spontaneous
  Country: US (occurrence: US)
  Receive Date: 20140409
  Receipt Date: 20140409
  Transmission Date: 20141212
  Serious: No
  Sender: FDA-Public Use
  Company Number: US-PFIZER INC-2014095119

PATIENT
  Age: 50 Year
  Sex: Female
  Weight: 63.04 kg

DRUGS (11)
  1. ENBREL [Suspect]
     Dosage: UNK
     Route: 065
  2. XELJANZ [Suspect]
     Dosage: 5 MG, QD
     Route: 048
  3. PREDNISONE [Concomitant]
     Dosage: 1 MG, UNK
  4. RESTASIS [Concomitant]
     Dosage: UNK
  5. COD LIVER OIL [Concomitant]
     Dosage: UNK
  6. DIFLUCAN [Concomitant]
     Dosage: 150 MG, UNK
  7. REPHRESH [Concomitant]
     Dosage: UNK
  8. IBUPROFEN [Concomitant]
     Dosage: 800 MG, UNK
  9. NAPROXEN [Concomitant]
     Dosage: 250 MG, UNK
  10. FOLIC ACID [Concomitant]
     Dosage: 1 MG, UNK
  11. FERROUS SULFATE [Concomitant]
     Dosage: UNK

REACTIONS (4)
  - Drug hypersensitivity [Unknown]
  - Oropharyngeal pain [Unknown]
  - Cough [Unknown]
  - Sneezing [Unknown]
